FAERS Safety Report 17519041 (Version 2)
Quarter: 2020Q2

REPORT INFORMATION
  Report Type: Other
  Country: BE (occurrence: BE)
  Receive Date: 20200310
  Receipt Date: 20200416
  Transmission Date: 20200713
  Serious: Yes (Hospitalization)
  Sender: FDA-Public Use
  Company Number: BE-CELLTRION INC.-2020BE020096

PATIENT

DRUGS (30)
  1. GYNO DAKTARIN [Concomitant]
     Dosage: 5 G, DAILY; ONGOING:YES
     Route: 061
  2. BRONCHOSEDAL [Concomitant]
     Active Substance: DEXTROMETHORPHAN HYDROBROMIDE
     Dosage: 5 ML; AS NECESSARY; ONGOING:YES
     Route: 048
  3. TIORFIX [Concomitant]
     Indication: DIARRHOEA
     Dosage: 100 MG 0.33 DAY
     Route: 048
     Dates: start: 20190725
  4. ALENDRONATE [Concomitant]
     Active Substance: ALENDRONATE SODIUM
     Dosage: 70 MG, DAILY; ONGOING:YES
     Route: 048
  5. TOTALIP [Concomitant]
     Active Substance: ATORVASTATIN
     Dosage: 20 MG, DAILY; ONGOING:YES
     Route: 048
  6. STEOVIT FORTE [Concomitant]
     Dosage: 1000 MG, DAILY; ONGOING:YES
     Route: 048
  7. TRAZODONE [Concomitant]
     Active Substance: TRAZODONE HYDROCHLORIDE
     Dosage: 100 MG, DAILY
     Route: 048
  8. COSOPT [Concomitant]
     Active Substance: DORZOLAMIDE HYDROCHLORIDE\TIMOLOL MALEATE
     Indication: PRODUCT USED FOR UNKNOWN INDICATION
     Dosage: 20 MG/ML, 1 DROP QD
     Route: 047
  9. ACICLOVIR [Concomitant]
     Active Substance: ACYCLOVIR
     Dosage: 800 MG, DAILY; ONGOING:YES
     Route: 048
  10. RITUXIMAB (UNKNOWN) [Suspect]
     Active Substance: RITUXIMAB
     Indication: B-CELL LYMPHOMA
     Dosage: 375 MG/M2 EVERY 8 WEEKS
     Route: 042
     Dates: start: 20171214
  11. IBRUTINIB [Suspect]
     Active Substance: IBRUTINIB
     Indication: B-CELL LYMPHOMA
     Dosage: DAILY, THERPAY DURATION: 647 DAYS
     Route: 048
     Dates: start: 20171214, end: 20190922
  12. COSOPT [Concomitant]
     Active Substance: DORZOLAMIDE HYDROCHLORIDE\TIMOLOL MALEATE
     Dosage: 20 MG/ML
     Route: 047
  13. FOSAVANCE [Concomitant]
     Active Substance: ALENDRONATE SODIUM\CHOLECALCIFEROL
     Dosage: 70 MG, 1/WEEK; 2800IU; ONGOING:YES
     Route: 048
  14. TELEBRIX GASTRO [Concomitant]
     Active Substance: MEGLUMINE IOXITHALAMATE
     Dosage: 50 ML, DAILY; ONGOING:YES
  15. ESOMEPRAZOLE. [Concomitant]
     Active Substance: ESOMEPRAZOLE MAGNESIUM
     Dosage: 20 MG, DAILY; ONGOING:YES
     Route: 048
  16. BISOPROLOL [Concomitant]
     Active Substance: BISOPROLOL
     Dosage: 2.5 MG, DAILY;ONGOING:YES
     Route: 048
  17. MAREVAN [Concomitant]
     Active Substance: WARFARIN SODIUM
     Dosage: 5 MG, DAILY; ONGOING: YES
     Route: 048
  18. D CURA [Concomitant]
     Dosage: 1 DOSE DAILY
     Route: 048
  19. BUSCOPAN [Concomitant]
     Active Substance: BUTYLSCOPOLAMINE BROMIDE
     Indication: ABDOMINAL PAIN
     Dosage: 10 MG; AS NECESSARY; ONGOING:YES
     Route: 048
     Dates: start: 20190919
  20. AMLOR [Concomitant]
     Active Substance: AMLODIPINE BESYLATE
     Dosage: 5 MG, DAILY; ONGOING:YES
     Route: 048
  21. VENLAFAXINE HYDROCHLORIDE. [Concomitant]
     Active Substance: VENLAFAXINE HYDROCHLORIDE
     Dosage: 150 MG DAILY
     Route: 048
  22. EUTHYROX [Concomitant]
     Active Substance: LEVOTHYROXINE SODIUM
     Dosage: 0.08 MG, DAILY; ONGOING:YES
     Route: 048
  23. DAFALGAN [Concomitant]
     Active Substance: ACETAMINOPHEN
     Dosage: 1 G; AS NECESSARY; ONGOING:YES
     Route: 048
  24. IMODIUM [Concomitant]
     Active Substance: LOPERAMIDE HYDROCHLORIDE
     Indication: DIARRHOEA
     Dosage: 2 MG; AS NECESSARY; ONGOING:YES
     Route: 048
     Dates: start: 20190919
  25. LUMIGAN [Concomitant]
     Active Substance: BIMATOPROST
     Dosage: 0.4 ML, DAILY; ONGOING:YES
     Route: 047
  26. PERINDOPRIL [Concomitant]
     Active Substance: PERINDOPRIL
     Dosage: 10 MG, DAILY; ONGOING:YES
     Route: 048
  27. VENLAFAXINE HYDROCHLORIDE. [Concomitant]
     Active Substance: VENLAFAXINE HYDROCHLORIDE
     Dosage: 27.5 MG, DAILY; ONGOING:YES
     Route: 048
  28. TEMESTA [LORAZEPAM] [Concomitant]
     Active Substance: LORAZEPAM
     Dosage: 1 MG, DAILY; ONGOING:YES
     Route: 065
  29. ENTYVIO [Concomitant]
     Active Substance: VEDOLIZUMAB
  30. COLOFIBER [Concomitant]
     Indication: DIARRHOEA
     Dosage: 0.5 DAILY; ONGOING:YES
     Route: 048
     Dates: start: 20190919

REACTIONS (3)
  - Colitis [Recovered/Resolved]
  - Cytomegalovirus infection [Recovered/Resolved]
  - Colitis [Recovered/Resolved]

NARRATIVE: CASE EVENT DATE: 20190921
